FAERS Safety Report 25852682 (Version 1)
Quarter: 2025Q3

REPORT INFORMATION
  Report Type: Spontaneous
  Country: CN (occurrence: CN)
  Receive Date: 20250926
  Receipt Date: 20250926
  Transmission Date: 20251021
  Serious: Yes (Other)
  Sender: RANBAXY
  Company Number: CN-SUN PHARMACEUTICAL INDUSTRIES LTD-2025R1-528765

PATIENT
  Age: 37 Year
  Sex: Female

DRUGS (10)
  1. CEFACLOR [Suspect]
     Active Substance: CEFACLOR
     Indication: In vitro fertilisation
     Route: 065
  2. ASPIRIN [Suspect]
     Active Substance: ASPIRIN
     Indication: In vitro fertilisation
     Route: 065
  3. ACETIC ACID [Suspect]
     Active Substance: ACETIC ACID
     Indication: In vitro fertilisation
     Route: 065
  4. METFORMIN HYDROCHLORIDE [Suspect]
     Active Substance: METFORMIN HYDROCHLORIDE
     Indication: In vitro fertilisation
     Route: 065
  5. PREDNISONE [Suspect]
     Active Substance: PREDNISONE
     Indication: In vitro fertilisation
     Route: 065
  6. PROGESTERONE [Suspect]
     Active Substance: PROGESTERONE
     Indication: In vitro fertilisation
     Route: 065
  7. DUPHASTON [Suspect]
     Active Substance: DYDROGESTERONE
     Indication: In vitro fertilisation
     Route: 065
  8. NITRIC ACID [Suspect]
     Active Substance: NITRIC ACID
     Indication: In vitro fertilisation
     Route: 065
  9. ESTRADIOL VALERATE [Suspect]
     Active Substance: ESTRADIOL VALERATE
     Indication: In vitro fertilisation
     Route: 065
  10. UROFOLLITROPIN [Suspect]
     Active Substance: UROFOLLITROPIN
     Indication: In vitro fertilisation
     Route: 065

REACTIONS (3)
  - Pleomorphic adenoma [Unknown]
  - Maternal exposure during pregnancy [Unknown]
  - Live birth [Unknown]
